FAERS Safety Report 4727787-2 (Version None)
Quarter: 2005Q3

REPORT INFORMATION
  Report Type: 
  Country: None (occurrence: None)
  Receive Date: 20050727
  Receipt Date: 20050715
  Transmission Date: 20060218
  Serious: Yes (Other)
  Sender: FDA-Public Use
  Company Number: 2005US000869

PATIENT
  Age: 60 Year
  Sex: Female

DRUGS (4)
  1. PROGRAF [Suspect]
     Indication: PROPHYLAXIS AGAINST TRANSPLANT REJECTION
  2. EPREX [Suspect]
     Indication: ANAEMIA
  3. PREDNISONE [Concomitant]
  4. WARFARIN SODIUM [Concomitant]

REACTIONS (2)
  - APLASIA [None]
  - HAEMOGLOBIN DECREASED [None]
